FAERS Safety Report 9093399 (Version 3)
Quarter: 2013Q4

REPORT INFORMATION
  Report Type: Spontaneous
  Country: US (occurrence: US)
  Receive Date: 20130218
  Receipt Date: 20131122
  Transmission Date: 20140711
  Serious: Yes (Hospitalization, Other)
  Sender: FDA-Public Use
  Company Number: US-009507513-1302USA007770

PATIENT
  Sex: Female
  Weight: 79.82 kg

DRUGS (4)
  1. FOSAMAX [Suspect]
     Indication: OSTEOPENIA
     Dosage: 10 MG, UNK
     Route: 048
     Dates: end: 20010430
  2. FOSAMAX [Suspect]
     Indication: OSTEOPOROSIS
     Dosage: 70 MG, UNK
     Route: 048
     Dates: start: 20011220, end: 20080505
  3. ALENDRONATE SODIUM [Suspect]
     Indication: OSTEOPENIA
     Dosage: 70 MG, UNK
     Route: 048
     Dates: start: 20080505, end: 20100810
  4. ACTONEL [Concomitant]
     Indication: OSTEOPENIA
     Dosage: 5 MG, UNK
     Route: 048
     Dates: start: 20010430, end: 20011220

REACTIONS (43)
  - Femur fracture [Unknown]
  - Intramedullary rod insertion [Unknown]
  - Haemorrhagic stroke [Recovering/Resolving]
  - Carotid endarterectomy [Unknown]
  - Cholecystectomy [Unknown]
  - Hypotension [Unknown]
  - Urinary retention [Unknown]
  - Essential hypertension [Unknown]
  - Type 2 diabetes mellitus [Unknown]
  - Dysphagia [Unknown]
  - Osteoarthritis [Unknown]
  - Low turnover osteopathy [Unknown]
  - Dental caries [Unknown]
  - Peptic ulcer [Unknown]
  - Barrett^s oesophagus [Unknown]
  - Hypertension [Unknown]
  - Hypercholesterolaemia [Unknown]
  - Transient ischaemic attack [Unknown]
  - Bursitis [Unknown]
  - Neuropathy peripheral [Unknown]
  - Meningioma [Unknown]
  - Appendicectomy [Unknown]
  - Carotid artery stenosis [Unknown]
  - Amaurosis fugax [Unknown]
  - Claustrophobia [Unknown]
  - Breast cyst [Unknown]
  - Biopsy breast [Unknown]
  - Stress urinary incontinence [Unknown]
  - Bladder neck suspension [Unknown]
  - Inguinal hernia [Unknown]
  - Inguinal hernia repair [Unknown]
  - Pain [Unknown]
  - Leukocytosis [Unknown]
  - Anaemia [Unknown]
  - Rib fracture [Unknown]
  - Wrist fracture [Unknown]
  - Carotid bruit [Unknown]
  - Peripheral vascular disorder [Unknown]
  - Carotid artery disease [Unknown]
  - Urinary tract infection [Unknown]
  - Nausea [Unknown]
  - Gastrooesophageal reflux disease [Unknown]
  - Abdominal discomfort [Unknown]
